FAERS Safety Report 7682629-0 (Version None)
Quarter: 2011Q3

REPORT INFORMATION
  Report Type: 
  Country: None (occurrence: None)
  Receive Date: 20110815
  Receipt Date: 20110805
  Transmission Date: 20111222
  Serious: Yes (Death)
  Sender: FDA-Public Use
  Company Number: PHHY2011JP72109

PATIENT
  Sex: Male

DRUGS (5)
  1. NIRENA [Concomitant]
     Dosage: 20 MG, UNK
     Route: 048
  2. NEUROVITAN [Concomitant]
     Dosage: 2 DF, UNK
     Route: 048
     Dates: start: 20070723, end: 20110108
  3. VALSARTAN [Suspect]
     Dosage: 80 MG, QD
     Route: 048
     Dates: start: 20080223, end: 20110108
  4. SUNRYTHM [Concomitant]
     Dosage: 150 MG, UNK
     Route: 048
     Dates: start: 20070903, end: 20110108
  5. NIRENA [Concomitant]
     Indication: HYPERTENSION
     Dosage: 10 MG, UNK
     Route: 048
     Dates: start: 19980407, end: 20110108

REACTIONS (1)
  - GASTRIC CANCER [None]
